FAERS Safety Report 7240393-3 (Version None)
Quarter: 2011Q1

REPORT INFORMATION
  Report Type: 
  Country: None (occurrence: None)
  Receive Date: 20110119
  Receipt Date: 20110119
  Transmission Date: 20110831
  Serious: Yes (Other)
  Sender: FDA-Public Use
  Company Number: None

PATIENT
  Age: 48 Year
  Sex: Female
  Weight: 56.6996 kg

DRUGS (2)
  1. AVELOX [Suspect]
     Indication: SINUSITIS
     Dosage: 400 MG ONCE A DAY PO
     Route: 048
     Dates: start: 20101215, end: 20101216
  2. AVELOX [Suspect]
     Indication: EAR INFECTION
     Dosage: 400 MG ONCE A DAY PO
     Route: 048
     Dates: start: 20101215, end: 20101216

REACTIONS (5)
  - TREMOR [None]
  - SELF-INJURIOUS IDEATION [None]
  - EMOTIONAL DISORDER [None]
  - SUICIDAL IDEATION [None]
  - INSOMNIA [None]
